FAERS Safety Report 14340552 (Version 1)
Quarter: 2018Q1

REPORT INFORMATION
  Report Type: Report from Study
  Country: US (occurrence: US)
  Receive Date: 20180101
  Receipt Date: 20180101
  Transmission Date: 20180509
  Serious: Yes (Hospitalization)
  Sender: FDA-Public Use
  Company Number: US-TAKEDA-2017TUS026874

PATIENT
  Sex: Male

DRUGS (1)
  1. VEDOLIZUMAB [Suspect]
     Active Substance: VEDOLIZUMAB
     Indication: CROHN^S DISEASE
     Dosage: 300 MG, UNK
     Route: 042
     Dates: start: 2015

REACTIONS (6)
  - Urethral obstruction [Unknown]
  - Asthenia [Unknown]
  - Pain [Unknown]
  - Crohn^s disease [Unknown]
  - Prostatitis [Unknown]
  - Arthritis [Unknown]
